FAERS Safety Report 9238482 (Version 1)
Quarter: 2013Q1

REPORT INFORMATION
  Report Type: Spontaneous
  Country: US (occurrence: None)
  Receive Date: 20121106
  Receipt Date: 20121106
  Transmission Date: 20140127
  Serious: No
  Sender: FDA-Public Use
  Company Number: 1000038579

PATIENT
  Age: 68 Year
  Sex: Male

DRUGS (5)
  1. DALIRESP (ROFLUMILAST) (500 MICROGRAM, TABLETS) [Suspect]
     Dosage: 500 MG QD (500 MCG, 1 IN 1 D),
     Route: 048
     Dates: start: 201208, end: 20120905
  2. DILTIAZEPAM (DILTIAZEPAM) [Concomitant]
     Dates: start: 201208, end: 201208
  3. MUCINEX (GUAFENESIN) (GUAFENESIN) [Concomitant]
  4. COMBIVENT (COMBIVENT) (COMBIVENT) [Concomitant]
  5. ASPIRIN (ACETYLSALICYLIC ACID) (ACETYLSALICYLIC ACID) [Concomitant]

REACTIONS (2)
  - Dizziness [None]
  - Tremor [None]
